FAERS Safety Report 15335777 (Version 5)
Quarter: 2019Q2

REPORT INFORMATION
  Report Type: Report from Study
  Country: ES (occurrence: ES)
  Receive Date: 20180830
  Receipt Date: 20190430
  Transmission Date: 20190711
  Serious: Yes (Hospitalization)
  Sender: FDA-Public Use
  Company Number: ES-B.I. PHARMACEUTICALS,INC./RIDGEFIELD-2018-BI-033836

PATIENT
  Age: 65 Year
  Sex: Male

DRUGS (14)
  1. AFATINIB [Suspect]
     Active Substance: AFATINIB
     Route: 048
     Dates: start: 20180714, end: 20180717
  2. METAMIZOL [Concomitant]
     Active Substance: METAMIZOLE SODIUM
     Indication: PAIN
     Route: 048
     Dates: start: 201802
  3. NOLOTIL [Concomitant]
     Indication: PAIN
     Route: 048
     Dates: start: 201802
  4. OMEPRAZOL [Concomitant]
     Active Substance: OMEPRAZOLE
     Route: 048
  5. BOREA [Concomitant]
     Active Substance: MEGESTROL ACETATE
     Indication: PROPHYLAXIS
     Route: 048
     Dates: start: 20170615
  6. SEVREDOL [Concomitant]
     Active Substance: MORPHINE
     Indication: PAIN
     Route: 048
     Dates: start: 201802
  7. OMEPRAZOL [Concomitant]
     Active Substance: OMEPRAZOLE
     Indication: PROPHYLAXIS
     Route: 048
     Dates: start: 2017
  8. DUROGESIC [Concomitant]
     Active Substance: FENTANYL
     Indication: PAIN
     Route: 062
     Dates: start: 20180508
  9. MEGESTROL [Concomitant]
     Active Substance: MEGESTROL
     Indication: PROPHYLAXIS
     Route: 048
  10. VALIUM [Concomitant]
     Active Substance: DIAZEPAM
     Indication: PROPHYLAXIS
     Route: 048
     Dates: start: 20180628
  11. ACFOL [Concomitant]
     Active Substance: FOLIC ACID
     Indication: PROPHYLAXIS
     Route: 048
     Dates: start: 20180629
  12. AFATINIB [Suspect]
     Active Substance: AFATINIB
     Route: 048
     Dates: start: 20180725, end: 20180814
  13. AFATINIB [Suspect]
     Active Substance: AFATINIB
     Indication: TRANSITIONAL CELL CARCINOMA
     Route: 048
     Dates: start: 20180618, end: 20180703
  14. BOREA [Concomitant]
     Active Substance: MEGESTROL ACETATE
     Indication: DECREASED APPETITE

REACTIONS (4)
  - Asthenia [Recovered/Resolved]
  - Dysphagia [Recovered/Resolved]
  - Respiratory tract infection [Recovered/Resolved]
  - Pain [Recovered/Resolved]

NARRATIVE: CASE EVENT DATE: 20180628
